FAERS Safety Report 9454689 (Version 1)
Quarter: 2013Q3

REPORT INFORMATION
  Report Type: Spontaneous
  Country: IT (occurrence: IT)
  Receive Date: 20130812
  Receipt Date: 20130812
  Transmission Date: 20140515
  Serious: Yes (Hospitalization, Other)
  Sender: FDA-Public Use
  Company Number: PHHY2013IT082790

PATIENT
  Age: 23 Year
  Sex: Male

DRUGS (4)
  1. IMATINIB [Suspect]
     Indication: ACUTE LYMPHOCYTIC LEUKAEMIA
     Dosage: UNK
  2. IMATINIB [Suspect]
     Dosage: 400 MG, DAILY
  3. DEXAMETHASONE [Suspect]
     Dosage: 40 MG
  4. VINCRISTINE [Suspect]
     Dosage: 2 MG

REACTIONS (5)
  - Thrombocytopenia [Unknown]
  - Bone pain [Unknown]
  - Hepatotoxicity [Unknown]
  - Acute lymphocytic leukaemia recurrent [Unknown]
  - Drug resistance [Unknown]
